FAERS Safety Report 9691230 (Version 1)
Quarter: 2013Q4

REPORT INFORMATION
  Report Type: Spontaneous
  Country: US (occurrence: US)
  Receive Date: 20131115
  Receipt Date: 20131115
  Transmission Date: 20140711
  Serious: No
  Sender: FDA-Public Use
  Company Number: US-BAUSCH-BL-2013-000572

PATIENT
  Sex: Female

DRUGS (2)
  1. TOBRAMYCIN AND DEXAMETHASONE OPHTHALMIC SUSPENSION USP 0.3%/0.1% [Suspect]
     Indication: POSTOPERATIVE CARE
     Dosage: ONE DROP INTO LEFT EYE FOUR TIMES DAILY
     Route: 047
     Dates: start: 20130205, end: 20130208
  2. TOBRAMYCIN AND DEXAMETHASONE OPHTHALMIC SUSPENSION USP 0.3%/0.1% [Suspect]
     Indication: OFF LABEL USE

REACTIONS (2)
  - Eye pain [Recovered/Resolved]
  - Lacrimation increased [Recovered/Resolved]
